FAERS Safety Report 6921655-3 (Version None)
Quarter: 2010Q3

REPORT INFORMATION
  Report Type: 
  Country: None (occurrence: None)
  Receive Date: 20100812
  Receipt Date: 20100802
  Transmission Date: 20110219
  Serious: Yes (Hospitalization)
  Sender: FDA-Public Use
  Company Number: US-RB-013772-10

PATIENT
  Age: 60 Year
  Sex: Male

DRUGS (3)
  1. SUBOXONE [Suspect]
     Route: 060
     Dates: start: 20080101
  2. SUBOXONE [Suspect]
     Dosage: DOSE WAS TAPERED TO 4 MG DAILY
     Route: 060
  3. SUBOXONE [Suspect]
     Indication: DRUG DEPENDENCE
     Route: 060

REACTIONS (2)
  - GALLBLADDER DISORDER [None]
  - PAIN [None]
